FAERS Safety Report 7432748-9 (Version None)
Quarter: 2011Q2

REPORT INFORMATION
  Report Type: 
  Country: None (occurrence: None)
  Receive Date: 20110422
  Receipt Date: 20110414
  Transmission Date: 20111010
  Serious: Yes (Hospitalization)
  Sender: FDA-Public Use
  Company Number: A0923791A

PATIENT
  Age: 80 Year
  Sex: Male

DRUGS (4)
  1. LAPATINIB [Suspect]
     Indication: PANCREATIC CARCINOMA
     Dosage: 1200MG PER DAY
     Route: 048
     Dates: start: 20101220
  2. LISINOPRIL [Concomitant]
     Dosage: 20MG PER DAY
     Route: 048
  3. XELODA [Suspect]
     Indication: PANCREATIC CARCINOMA
     Dosage: 1500MG TWICE PER DAY
     Route: 048
     Dates: start: 20101220
  4. SIMVASTATIN [Concomitant]
     Dosage: 20MG PER DAY
     Route: 048

REACTIONS (3)
  - DEHYDRATION [None]
  - DECREASED APPETITE [None]
  - ATAXIA [None]
